FAERS Safety Report 11539350 (Version 1)
Quarter: 2015Q3

REPORT INFORMATION
  Report Type: Report from Study
  Country: ZA (occurrence: ZA)
  Receive Date: 20150923
  Receipt Date: 20150923
  Transmission Date: 20151125
  Serious: Yes (Death, Life-Threatening, Hospitalization)
  Sender: FDA-Public Use
  Company Number: ZA-ROCHE-1578203

PATIENT
  Age: 58 Year
  Sex: Female
  Weight: 52 kg

DRUGS (37)
  1. ADRIAMYCIN [Suspect]
     Active Substance: DOXORUBICIN HYDROCHLORIDE
     Dosage: IVI 3 WEEKLY
     Route: 042
     Dates: start: 20150331
  2. ETOPOSIDE. [Suspect]
     Active Substance: ETOPOSIDE
     Dosage: X 1 DAY. LAST DOSE PRIOR TO THE EVENT OF NEUTROPENIC SEPSIS
     Route: 042
     Dates: start: 20150224, end: 20150224
  3. VINCRISTINE [Suspect]
     Active Substance: VINCRISTINE
     Dosage: X 1 DAY. LAST DOSE PRIOR TO THE EVENT OF NEUTROPENIC SEPSIS
     Route: 042
     Dates: start: 20150224
  4. VINCRISTINE [Suspect]
     Active Substance: VINCRISTINE
     Route: 042
  5. LANZOR [Concomitant]
     Active Substance: LANSOPRAZOLE
     Route: 048
  6. SOLU-CORTEF [Concomitant]
     Active Substance: HYDROCORTISONE SODIUM SUCCINATE
     Dosage: X 1 DOSE
     Route: 042
     Dates: start: 20150421, end: 20150421
  7. BUDESONIDE NASAL SPRAY [Concomitant]
     Active Substance: BUDESONIDE
     Dosage: TWICE PER DAY SPRAY INTO NOSE
     Route: 065
     Dates: start: 20150316
  8. ALLOPURINOL. [Concomitant]
     Active Substance: ALLOPURINOL
     Route: 048
     Dates: start: 20150421
  9. CYCLOPHOSPHAMIDE. [Suspect]
     Active Substance: CYCLOPHOSPHAMIDE
     Dosage: X 1 DAY
     Route: 042
     Dates: start: 20150421
  10. PREDNISONE. [Suspect]
     Active Substance: PREDNISONE
     Dosage: ONCE DAILY FOR 7 DAYS
     Route: 048
     Dates: start: 20150224
  11. ZOFRAN [Concomitant]
     Active Substance: ONDANSETRON HYDROCHLORIDE
     Dosage: X 1 DOSE
     Route: 042
     Dates: start: 20150421, end: 20150421
  12. LOSEC [Concomitant]
     Active Substance: OMEPRAZOLE
     Route: 048
  13. RITUXIMAB [Suspect]
     Active Substance: RITUXIMAB
     Dosage: DOSE: 560 MG
     Route: 042
     Dates: start: 20150421
  14. CYCLOPHOSPHAMIDE. [Suspect]
     Active Substance: CYCLOPHOSPHAMIDE
     Indication: NON-HODGKIN^S LYMPHOMA
     Dosage: RECEIVED 6 CYCLES
     Route: 042
     Dates: start: 20141030
  15. ADRIAMYCIN [Suspect]
     Active Substance: DOXORUBICIN HYDROCHLORIDE
     Indication: NON-HODGKIN^S LYMPHOMA
     Route: 042
     Dates: start: 20141030
  16. ETOPOSIDE. [Suspect]
     Active Substance: ETOPOSIDE
     Indication: NON-HODGKIN^S LYMPHOMA
     Dosage: RECEIVED 6 CYCLES
     Route: 042
     Dates: start: 20141030
  17. VINCRISTINE [Suspect]
     Active Substance: VINCRISTINE
     Indication: NON-HODGKIN^S LYMPHOMA
     Dosage: RECEIVED 6 CYCLES
     Route: 042
     Dates: start: 20141030
  18. ZOFRAN [Concomitant]
     Active Substance: ONDANSETRON HYDROCHLORIDE
     Dosage: X 1 DOSE
     Route: 042
     Dates: start: 20150224, end: 20150224
  19. TRAMADOL. [Concomitant]
     Active Substance: TRAMADOL
     Route: 065
     Dates: start: 20150315, end: 20150320
  20. CYCLOPHOSPHAMIDE. [Suspect]
     Active Substance: CYCLOPHOSPHAMIDE
     Route: 042
     Dates: start: 20150331
  21. ADRIAMYCIN [Suspect]
     Active Substance: DOXORUBICIN HYDROCHLORIDE
     Dosage: IVI 3 WEEKLY
     Route: 042
     Dates: start: 20150421
  22. VINCRISTINE [Suspect]
     Active Substance: VINCRISTINE
     Route: 042
     Dates: start: 20150331
  23. SOLU-CORTEF [Concomitant]
     Active Substance: HYDROCORTISONE SODIUM SUCCINATE
     Dosage: X 1 DOSE
     Route: 042
     Dates: start: 20150224, end: 20150224
  24. SPECTRAPAIN [Concomitant]
     Dosage: TWO THREE TIMES PER DAY WHEN NECESSARY
     Route: 048
  25. ETOPOSIDE. [Suspect]
     Active Substance: ETOPOSIDE
     Route: 042
     Dates: start: 20150421
  26. PREDNISONE. [Suspect]
     Active Substance: PREDNISONE
     Dosage: ONCE DAILY FOR 7 DAYS
     Route: 048
     Dates: start: 20150331
  27. PREDNISONE. [Suspect]
     Active Substance: PREDNISONE
     Dosage: ONCE DAILY FOR 7 DAYS
     Route: 048
     Dates: start: 20150421
  28. TRAMADOL. [Concomitant]
     Active Substance: TRAMADOL
     Route: 048
     Dates: start: 20150421
  29. ALLOPURINOL. [Concomitant]
     Active Substance: ALLOPURINOL
     Route: 048
  30. LOSEC [Concomitant]
     Active Substance: OMEPRAZOLE
     Route: 048
     Dates: start: 20150421
  31. ZOFRAN [Concomitant]
     Active Substance: ONDANSETRON HYDROCHLORIDE
     Dosage: 4MG TWICE DAILY ORALLY WHEN NECESSARY FOR 3 DAYS
     Route: 048
  32. RITUXIMAB [Suspect]
     Active Substance: RITUXIMAB
     Indication: NON-HODGKIN^S LYMPHOMA
     Route: 042
     Dates: start: 20150331
  33. CYCLOPHOSPHAMIDE. [Suspect]
     Active Substance: CYCLOPHOSPHAMIDE
     Dosage: X 1 DAY. LAST DOSE PRIOR TO THE EVENT OF NEUTROPENIC SEPSIS
     Route: 042
     Dates: start: 20150224, end: 20150224
  34. ADRIAMYCIN [Suspect]
     Active Substance: DOXORUBICIN HYDROCHLORIDE
     Dosage: X 1 DAY. LAST DOSE PRIOR TO THE EVENT OF NEUTROPENIC SEPSIS
     Route: 042
     Dates: start: 20150224, end: 20150224
  35. ETOPOSIDE. [Suspect]
     Active Substance: ETOPOSIDE
     Route: 042
     Dates: start: 20150331
  36. PREDNISONE. [Suspect]
     Active Substance: PREDNISONE
     Indication: NON-HODGKIN^S LYMPHOMA
     Dosage: ONCE DAILY FOR 7 DAYS
     Route: 048
     Dates: start: 20141030
  37. SPECTRAPAIN [Concomitant]
     Route: 065
     Dates: start: 20150421

REACTIONS (9)
  - Pulmonary embolism [Fatal]
  - Neutropenia [Fatal]
  - Electrolyte imbalance [Fatal]
  - General physical health deterioration [Fatal]
  - Sepsis [Fatal]
  - Disseminated intravascular coagulation [Fatal]
  - Neutropenic sepsis [Recovered/Resolved]
  - Septic shock [Fatal]
  - Deep vein thrombosis [Fatal]

NARRATIVE: CASE EVENT DATE: 20150303
